FAERS Safety Report 4595985-7 (Version None)
Quarter: 2005Q1

REPORT INFORMATION
  Report Type: 
  Country: None (occurrence: None)
  Receive Date: 20050224
  Receipt Date: 20050207
  Transmission Date: 20050727
  Serious: Yes (Other)
  Sender: FDA-Public Use
  Company Number: DE_050215223

PATIENT
  Age: 72 Year
  Sex: Female

DRUGS (2)
  1. GEMZAR [Suspect]
     Indication: METASTATIC CARCINOMA OF THE BLADDER
     Dosage: 1000 MG
  2. CISPLATIN [Concomitant]

REACTIONS (3)
  - CYANOSIS [None]
  - EXTREMITY NECROSIS [None]
  - NEURITIS CRANIAL [None]
